FAERS Safety Report 7776073-5 (Version None)
Quarter: 2011Q3

REPORT INFORMATION
  Report Type: 
  Country: None (occurrence: None)
  Receive Date: 20110925
  Receipt Date: 20110914
  Transmission Date: 20111222
  Serious: Yes (Hospitalization, Other)
  Sender: FDA-Public Use
  Company Number: JP-AMGEN-JPNCT2011039672

PATIENT
  Age: 73 Year
  Sex: Male
  Weight: 51 kg

DRUGS (5)
  1. PANITUMUMAB [Suspect]
     Indication: COLORECTAL CANCER
     Dosage: 306 MG, Q2WK
     Route: 041
     Dates: start: 20110705, end: 20110705
  2. EFUDEX [Suspect]
     Indication: COLORECTAL CANCER
     Route: 040
     Dates: start: 20110705, end: 20110705
  3. TOPOTECAN [Suspect]
     Indication: COLORECTAL CANCER
     Route: 041
     Dates: start: 20110705, end: 20110705
  4. LEUCOVORIN CALCIUM [Suspect]
     Indication: COLORECTAL CANCER
     Route: 041
     Dates: start: 20110705, end: 20110705
  5. EFUDEX [Suspect]
     Route: 041
     Dates: start: 20110705, end: 20110707

REACTIONS (3)
  - PNEUMONIA [None]
  - DELIRIUM [None]
  - PANCYTOPENIA [None]
